FAERS Safety Report 4644296-X (Version None)
Quarter: 2005Q2

REPORT INFORMATION
  Report Type: 
  Country: None (occurrence: None)
  Receive Date: 20050422
  Receipt Date: 20050412
  Transmission Date: 20051028
  Serious: Yes (Hospitalization)
  Sender: FDA-Public Use
  Company Number: 213754

PATIENT
  Age: 68 Year
  Sex: Male
  Weight: 89 kg

DRUGS (6)
  1. MABTHERA (RITUXIMAB) CONC FOR SOLUTION FOR INFUSION) [Suspect]
     Indication: CHRONIC LYMPHOCYTIC LEUKAEMIA
     Dosage: 375 MG/M2, Q4W, INTRAVENOUS
     Route: 042
     Dates: start: 20050321, end: 20050331
  2. CYCLOPHOSPHAMIDE [Suspect]
     Indication: CHRONIC LYMPHOCYTIC LEUKAEMIA
     Dosage: 250 MG/M2, Q4W, INTRAVENOUS
     Route: 042
     Dates: start: 20050321, end: 20050323
  3. FLUDARABINE PHOSPHATE [Suspect]
     Indication: CHRONIC LYMPHOCYTIC LEUKAEMIA
     Dosage: 25 MG/M2, Q4W, INTRAVENOUS
     Route: 042
     Dates: start: 20050321, end: 20050323
  4. L-THYROX (LEVOTHYROXINE SODIUM) [Concomitant]
  5. CYNT (MOXONIDINE) [Concomitant]
  6. BAYOTENSIN (NITRENDIPINE) [Concomitant]

REACTIONS (2)
  - LEUKOPENIA [None]
  - PNEUMONIA [None]
